FAERS Safety Report 25482985 (Version 1)
Quarter: 2025Q2

REPORT INFORMATION
  Report Type: Other
  Country: PL (occurrence: PL)
  Receive Date: 20250626
  Receipt Date: 20250626
  Transmission Date: 20250716
  Serious: Yes (Other)
  Sender: RENATA LIMITED
  Company Number: PL-Renata Limited-2179434

PATIENT
  Age: 91 Year
  Sex: Female

DRUGS (2)
  1. METOPROLOL TARTRATE [Suspect]
     Active Substance: METOPROLOL TARTRATE
     Indication: Product used for unknown indication
  2. INDAPAMIDE [Suspect]
     Active Substance: INDAPAMIDE

REACTIONS (1)
  - Pemphigus [Recovering/Resolving]
